FAERS Safety Report 5554859-5 (Version None)
Quarter: 2007Q4

REPORT INFORMATION
  Report Type: 
  Country: None (occurrence: None)
  Receive Date: 20071211
  Receipt Date: 20071128
  Transmission Date: 20080405
  Serious: Yes (Other)
  Sender: FDA-Public Use
  Company Number: 2007AP001311

PATIENT
  Age: 63 Year
  Sex: Female

DRUGS (8)
  1. ZOLPIDEM [Suspect]
     Indication: SLEEP DISORDER
     Dosage: 10 MG; HS; PO; 5 MG; HS; PO
     Route: 048
     Dates: start: 20070801, end: 20071114
  2. ZOLPIDEM [Suspect]
     Indication: SLEEP DISORDER
     Dosage: 10 MG; HS; PO; 5 MG; HS; PO
     Route: 048
     Dates: start: 20071115
  3. INSULIN [Concomitant]
  4. BUMETANIDE [Concomitant]
  5. PREDNISONE [Concomitant]
  6. URSODIOL [Concomitant]
  7. WARFARIN SODIUM [Concomitant]
  8. ZOLPIDEM [Concomitant]

REACTIONS (2)
  - AMNESIA [None]
  - LOSS OF CONSCIOUSNESS [None]
